FAERS Safety Report 4332462-2 (Version None)
Quarter: 2004Q2

REPORT INFORMATION
  Report Type: 
  Country: None (occurrence: None)
  Receive Date: 20040401
  Receipt Date: 20040322
  Transmission Date: 20050107
  Serious: Yes (Hospitalization)
  Sender: FDA-Public Use
  Company Number: HQWYE015822MAR04

PATIENT
  Age: 73 Year
  Sex: Female

DRUGS (4)
  1. CORDARONE [Suspect]
     Dosage: 200 MG 1X PER 1 DAY
     Route: 048
     Dates: start: 20040120, end: 20040226
  2. LASIX [Suspect]
     Dosage: 60 MG 1X PER 1 DAY
     Route: 048
     Dates: start: 20040120, end: 20040226
  3. PREVISCAN (FLUINDIONE, ) [Suspect]
     Dosage: 15 MG 1X PER 1 DAY
     Route: 048
     Dates: start: 20040120, end: 20040226
  4. RAMIPRIL [Suspect]
     Dosage: 2.5 MG 1X PER 1 DAY
     Route: 048
     Dates: start: 20040120, end: 20040226

REACTIONS (7)
  - AGRANULOCYTOSIS [None]
  - ANISOCYTOSIS [None]
  - LYMPHOCYTE COUNT DECREASED [None]
  - MONOCYTE COUNT INCREASED [None]
  - NEUTROPHIL COUNT DECREASED [None]
  - SKIN ULCER [None]
  - WHITE BLOOD CELL COUNT DECREASED [None]
